FAERS Safety Report 7551618-9 (Version None)
Quarter: 2011Q2

REPORT INFORMATION
  Report Type: 
  Country: None (occurrence: None)
  Receive Date: 20110616
  Receipt Date: 20110610
  Transmission Date: 20111010
  Serious: Yes (Other)
  Sender: FDA-Public Use
  Company Number: MX-PFIZER INC-2011128581

PATIENT
  Age: 32 Year
  Sex: Female
  Weight: 46 kg

DRUGS (2)
  1. LYRICA [Suspect]
     Indication: SURGERY
     Dosage: 75 MG, 1X/DAY
     Route: 048
     Dates: start: 20101001
  2. LYRICA [Suspect]
     Indication: INTERVERTEBRAL DISC PROTRUSION
     Dosage: UNK MG, 1X/DAY
     Route: 048

REACTIONS (4)
  - DYSPNOEA [None]
  - CHEST PAIN [None]
  - CARDIOMEGALY [None]
  - PALPITATIONS [None]
